FAERS Safety Report 13900949 (Version 2)
Quarter: 2017Q3

REPORT INFORMATION
  Report Type: Other
  Country: CA (occurrence: CA)
  Receive Date: 20170824
  Receipt Date: 20170922
  Transmission Date: 20171127
  Serious: Yes (Other)
  Sender: FDA-Public Use
  Company Number: CA-APOTEX-2017AP016775

PATIENT
  Age: 45 Year
  Sex: Female

DRUGS (4)
  1. NILOTINIB [Suspect]
     Active Substance: NILOTINIB
     Indication: CHRONIC MYELOID LEUKAEMIA
  2. APO-IMATINIB [Suspect]
     Active Substance: IMATINIB
     Indication: CHRONIC MYELOID LEUKAEMIA
  3. APO-IMATINIB [Suspect]
     Active Substance: IMATINIB
     Indication: MYELOID LEUKAEMIA
     Dosage: 400 MG, QD
     Route: 048
  4. NILOTINIB [Suspect]
     Active Substance: NILOTINIB
     Indication: MYELOID LEUKAEMIA
     Dosage: 200 MG, BID
     Route: 048

REACTIONS (4)
  - Therapy non-responder [Unknown]
  - Toxicity to various agents [Unknown]
  - Neutropenia [Unknown]
  - Cytogenetic analysis abnormal [Unknown]
